FAERS Safety Report 23914696 (Version 1)
Quarter: 2024Q2

REPORT INFORMATION
  Report Type: Spontaneous
  Country: AT (occurrence: None)
  Receive Date: 20240529
  Receipt Date: 20240529
  Transmission Date: 20240716
  Serious: Yes (Other)
  Sender: FDA-Public Use
  Company Number: 2024A122301

PATIENT
  Age: 65 Year
  Sex: Female
  Weight: 57 kg

DRUGS (1)
  1. OLAPARIB [Suspect]
     Active Substance: OLAPARIB
     Indication: Ovarian cancer
     Route: 048
     Dates: start: 202309

REACTIONS (3)
  - Respiratory syncytial virus infection [Unknown]
  - Anaemia [Recovered/Resolved]
  - Off label use [Unknown]
